FAERS Safety Report 15686577 (Version 5)
Quarter: 2020Q4

REPORT INFORMATION
  Report Type: Spontaneous
  Country: US (occurrence: US)
  Receive Date: 20181204
  Receipt Date: 20201016
  Transmission Date: 20210113
  Serious: Yes (Hospitalization)
  Sender: FDA-Public Use
  Company Number: US-JNJFOC-20181137256

PATIENT
  Age: 49 Year
  Sex: Female
  Weight: 67.01 kg

DRUGS (4)
  1. MIRENA [Concomitant]
     Active Substance: LEVONORGESTREL
     Route: 065
  2. CALCIUM [Concomitant]
     Active Substance: CALCIUM
     Route: 048
  3. STELARA [Suspect]
     Active Substance: USTEKINUMAB
     Indication: CROHN^S DISEASE
     Route: 042
     Dates: start: 20181121
  4. TRAZODONE [Concomitant]
     Active Substance: TRAZODONE HYDROCHLORIDE
     Indication: SLEEP DISORDER
     Route: 048
     Dates: start: 20070109

REACTIONS (3)
  - Septic shock [Recovered/Resolved]
  - Diarrhoea [Not Recovered/Not Resolved]
  - Urosepsis [Recovered/Resolved]

NARRATIVE: CASE EVENT DATE: 201811
